FAERS Safety Report 7647589-7 (Version None)
Quarter: 2011Q3

REPORT INFORMATION
  Report Type: 
  Country: None (occurrence: None)
  Receive Date: 20110726
  Receipt Date: 20110711
  Transmission Date: 20111222
  Serious: Yes (Hospitalization)
  Sender: FDA-Public Use
  Company Number: DSJ-2011-14494

PATIENT
  Age: 9 Decade
  Sex: Male

DRUGS (1)
  1. BENICAR HCT [Suspect]
     Indication: HYPERTENSION
     Dosage: 40/12.5 MG (1 IN 1 D), PER ORAL
     Route: 048
     Dates: start: 20090101, end: 20110401

REACTIONS (3)
  - DIZZINESS [None]
  - ANGINA PECTORIS [None]
  - INFARCTION [None]
